FAERS Safety Report 5122098-8 (Version None)
Quarter: 2006Q4

REPORT INFORMATION
  Report Type: 
  Country: None (occurrence: None)
  Receive Date: 20061004
  Receipt Date: 20061004
  Transmission Date: 20070319
  Serious: Yes (Death, Life-Threatening, Hospitalization)
  Sender: FDA-Public Use
  Company Number: None

PATIENT
  Age: 49 Year
  Sex: Female
  Weight: 58.9676 kg

DRUGS (1)
  1. LYRICA [Suspect]
     Indication: NEURALGIA
     Dosage: 150MG PO
     Route: 048
     Dates: start: 20060908, end: 20060923

REACTIONS (12)
  - APALLIC SYNDROME [None]
  - BRAIN DAMAGE [None]
  - BRAIN HYPOXIA [None]
  - CARDIO-RESPIRATORY ARREST [None]
  - DRY MOUTH [None]
  - DYSPNOEA [None]
  - FEELING DRUNK [None]
  - OEDEMA PERIPHERAL [None]
  - PALLOR [None]
  - SOMNOLENCE [None]
  - SWELLING FACE [None]
  - SWOLLEN TONGUE [None]
